FAERS Safety Report 7270773-1 (Version None)
Quarter: 2011Q1

REPORT INFORMATION
  Report Type: 
  Country: None (occurrence: None)
  Receive Date: 20110202
  Receipt Date: 20110128
  Transmission Date: 20110831
  Serious: Yes (Other)
  Sender: FDA-Public Use
  Company Number: BR-PFIZER INC-2011021457

PATIENT
  Age: 16 Year
  Sex: Female

DRUGS (1)
  1. GEODON [Suspect]
     Route: 048

REACTIONS (5)
  - HEART RATE INCREASED [None]
  - TREMOR [None]
  - ASTHENIA [None]
  - INAPPROPRIATE SCHEDULE OF DRUG ADMINISTRATION [None]
  - DYSPNOEA [None]
